FAERS Safety Report 4588900-3 (Version None)
Quarter: 2005Q1

REPORT INFORMATION
  Report Type: 
  Country: None (occurrence: None)
  Receive Date: 20050216
  Receipt Date: 20050202
  Transmission Date: 20050727
  Serious: Yes (Hospitalization, Other)
  Sender: FDA-Public Use
  Company Number: 2005020356

PATIENT
  Age: 61 Year
  Sex: Female

DRUGS (8)
  1. SERTRALINE HCL [Suspect]
     Indication: ILL-DEFINED DISORDER
     Dosage: 50 MG (1 IN 1 D), ORAL
     Route: 048
  2. GABAPENTIN [Suspect]
     Indication: ILL-DEFINED DISORDER
     Dosage: 900 MG (3 IN 1 D)
  3. METHADONE HYDROCHLORIDE (METHADONE) (METHADONE HYDROCHLORIDE) [Suspect]
     Indication: CANCER PAIN
     Dosage: ORAL
     Route: 048
  4. FENTANYL [Suspect]
     Indication: CANCER PAIN
     Dosage: INTRAVENOUS
     Route: 042
  5. MIDAZOLAM HCL [Suspect]
     Indication: ILL-DEFINED DISORDER
  6. ENALAPRIL MALEATE [Concomitant]
  7. ACETYLSALICYLIC ACID SRT [Concomitant]
  8. DIGOXIN [Concomitant]

REACTIONS (16)
  - BLOOD ALBUMIN DECREASED [None]
  - BLOOD ALKALINE PHOSPHATASE INCREASED [None]
  - BLOOD PRESSURE INCREASED [None]
  - DRUG INTERACTION [None]
  - EJECTION FRACTION DECREASED [None]
  - ELECTROCARDIOGRAM QT PROLONGED [None]
  - HAEMOGLOBIN DECREASED [None]
  - HEART RATE INCREASED [None]
  - HYPOTENSION [None]
  - PULMONARY OEDEMA [None]
  - RESPIRATORY DISTRESS [None]
  - RESPIRATORY RATE INCREASED [None]
  - TORSADE DE POINTES [None]
  - VENTRICULAR DYSFUNCTION [None]
  - VENTRICULAR TACHYCARDIA [None]
  - WHITE BLOOD CELL COUNT INCREASED [None]
